FAERS Safety Report 13093597 (Version 1)
Quarter: 2017Q1

REPORT INFORMATION
  Report Type: Spontaneous
  Country: US (occurrence: US)
  Receive Date: 20170105
  Receipt Date: 20170105
  Transmission Date: 20170428
  Serious: Yes (Other)
  Sender: FDA-Public Use
  Company Number: None

PATIENT
  Age: 62 Year
  Sex: Male
  Weight: 93.44 kg

DRUGS (2)
  1. OXYMORPHONE ER 40MG [Suspect]
     Active Substance: OXYMORPHONE
  2. MS CONTIN [Suspect]
     Active Substance: MORPHINE SULFATE

REACTIONS (3)
  - Anxiety [None]
  - Chills [None]
  - Headache [None]

NARRATIVE: CASE EVENT DATE: 20151207
